FAERS Safety Report 25120570 (Version 1)
Quarter: 2025Q1

REPORT INFORMATION
  Report Type: Spontaneous
  Country: AU (occurrence: AU)
  Receive Date: 20250325
  Receipt Date: 20250325
  Transmission Date: 20250409
  Serious: Yes (Other)
  Sender: VERITY PHARMACEUTICALS INC.
  Company Number: AU-VER-202500010

PATIENT
  Age: 9 Year
  Sex: Female

DRUGS (1)
  1. TRIPTORELIN PAMOATE [Suspect]
     Active Substance: TRIPTORELIN PAMOATE
     Indication: Product used for unknown indication
     Route: 065

REACTIONS (1)
  - Idiopathic intracranial hypertension [Unknown]
